FAERS Safety Report 10205269 (Version 1)
Quarter: 2014Q2

REPORT INFORMATION
  Report Type: Spontaneous
  Country: US (occurrence: None)
  Receive Date: 20140527
  Receipt Date: 20140527
  Transmission Date: 20141212
  Serious: Yes (Hospitalization)
  Sender: FDA-Public Use
  Company Number: None

PATIENT
  Age: 65 Year
  Sex: Male

DRUGS (15)
  1. RITUXIMAB [Suspect]
     Indication: LEUKAEMIA
     Route: 042
     Dates: start: 20120117, end: 20120117
  2. DALTEPARIN [Concomitant]
  3. ACETAMINOPHEN [Concomitant]
  4. ACYCLOVIR [Concomitant]
  5. ALLOPURINOL [Concomitant]
  6. ALPRAZOLAM [Concomitant]
  7. ASPIRIN [Concomitant]
  8. EPINEPHRINE [Concomitant]
  9. FOLIC ACID [Concomitant]
  10. METOPROLOL [Concomitant]
  11. MULTIVITAMIN [Concomitant]
  12. PREDNISONE [Concomitant]
  13. ROSUVASTATIN [Concomitant]
  14. SULFAMETHOXAZOLE-TRIMETHOPRIM [Concomitant]
  15. ALBUTEROL [Concomitant]

REACTIONS (2)
  - Hypotension [None]
  - Heart rate increased [None]
